FAERS Safety Report 6818334-X (Version None)
Quarter: 2010Q3

REPORT INFORMATION
  Report Type: 
  Country: None (occurrence: None)
  Receive Date: 20100706
  Receipt Date: 20100621
  Transmission Date: 20110219
  Serious: No
  Sender: FDA-Public Use
  Company Number: US-ELI_LILLY_AND_COMPANY-US201003007802

PATIENT
  Age: 50 Year
  Sex: Female

DRUGS (9)
  1. CYMBALTA [Suspect]
     Indication: MAJOR DEPRESSION
     Dosage: 60 MG, DAILY (1/D)
     Route: 065
  2. CYMBALTA [Suspect]
     Dosage: 60 MG, 2/D
     Route: 065
  3. CYMBALTA [Suspect]
     Dosage: 60 MG, DAILY (1/D)
  4. LEVOTHYROXINE SODIUM [Concomitant]
     Indication: HYPOTHYROIDISM
     Dosage: 200 UG, DAILY (1/D)
  5. VITAMIN B 12 LICHTENSTEIN [Concomitant]
     Indication: ANAEMIA PROPHYLAXIS
     Dosage: 1000 UG, DAILY (1/D)
  6. CLONAZEPAM [Concomitant]
     Indication: RESTLESS LEGS SYNDROME
     Dosage: 0.5 MG, EACH EVENING
  7. CALCIUM COMPOUNDS [Concomitant]
     Dosage: 1 D/F, DAILY (1/D)
  8. SUPER B COMPLEX [Concomitant]
     Dosage: 1 D/F, DAILY (1/D)
  9. MULTI-VITAMIN [Concomitant]
     Dosage: 1 D/F, DAILY (1/D)

REACTIONS (6)
  - DIZZINESS [None]
  - DRUG ADMINISTRATION ERROR [None]
  - DRUG EFFECT DECREASED [None]
  - DYSPNOEA [None]
  - PALPITATIONS [None]
  - WEIGHT INCREASED [None]
